FAERS Safety Report 7460735-3 (Version None)
Quarter: 2011Q2

REPORT INFORMATION
  Report Type: 
  Country: None (occurrence: None)
  Receive Date: 20110505
  Receipt Date: 20110502
  Transmission Date: 20111010
  Serious: Yes (Other)
  Sender: FDA-Public Use
  Company Number: US-PFIZER INC-2011074578

PATIENT
  Sex: Male
  Weight: 72 kg

DRUGS (5)
  1. HYDROCHLOROTHIAZIDE [Concomitant]
     Indication: DIURETIC THERAPY
     Dosage: 25 MG, 1X/DAY
  2. CELEBREX [Suspect]
     Dosage: 200 MG DAILY
     Dates: start: 20110301, end: 20110301
  3. AMLODIPINE [Concomitant]
     Indication: HYPERTENSION
     Dosage: 25 MG, 1X/DAY
  4. CELEBREX [Suspect]
     Indication: ARTHRITIS
     Dosage: 200 MG DAILY
     Dates: start: 20080101
  5. ALTACE [Suspect]
     Indication: HYPERTENSION
     Dosage: UNK, TWICE DAILY
     Dates: start: 19970101, end: 20100101

REACTIONS (2)
  - URTICARIA [None]
  - LIP SWELLING [None]
